FAERS Safety Report 26177885 (Version 1)
Quarter: 2025Q4

REPORT INFORMATION
  Report Type: Spontaneous
  Country: EU (occurrence: EU)
  Receive Date: 20251219
  Receipt Date: 20251219
  Transmission Date: 20260118
  Serious: Yes (Life-Threatening, Hospitalization)
  Sender: BAUSCH AND LOMB
  Company Number: EU-BAUSCH-BH-2025-022298

PATIENT
  Age: 67 Year
  Sex: Male

DRUGS (1)
  1. DIAZEPAM [Suspect]
     Active Substance: DIAZEPAM
     Indication: Delirium tremens
     Dosage: DURING THE FIRST WEEK OF HOSPITALISATION
     Route: 065

REACTIONS (4)
  - Pneumonia aspiration [Unknown]
  - Renal failure [Unknown]
  - Depressed level of consciousness [Unknown]
  - Toxicity to various agents [Unknown]
